FAERS Safety Report 7422155-7 (Version None)
Quarter: 2011Q2

REPORT INFORMATION
  Report Type: 
  Country: None (occurrence: None)
  Receive Date: 20110418
  Receipt Date: 20110222
  Transmission Date: 20111010
  Serious: Yes (Hospitalization, Other)
  Sender: FDA-Public Use
  Company Number: US-BAYER-201013715NA

PATIENT
  Age: 29 Year
  Sex: Female
  Weight: 59.091 kg

DRUGS (18)
  1. ALBUTEROL [Concomitant]
     Route: 065
  2. NASONEX [Concomitant]
     Route: 065
     Dates: start: 20070901, end: 20080801
  3. YAZ [Suspect]
  4. LEVAQUIN [Concomitant]
     Indication: UPPER RESPIRATORY TRACT INFECTION
  5. OCELLA [Suspect]
     Indication: ORAL CONTRACEPTION
     Route: 048
     Dates: start: 20050501, end: 20090501
  6. FEXOFENADINE [Concomitant]
     Route: 065
     Dates: start: 20070913, end: 20080806
  7. ALLEGRA [Concomitant]
     Route: 065
     Dates: start: 20050101
  8. OXYCODONE HCL AND ACETAMINOPHEN [Concomitant]
     Dosage: 16-FEB-2008
     Route: 065
  9. ADVAIR DISKUS 100/50 [Concomitant]
     Dosage: 04-NOV-2008
     Route: 065
  10. MECLIZINE [Concomitant]
     Dosage: ??-OCT-2007
     Route: 065
  11. PHENAZOPYRIDINE HCL TAB [Concomitant]
     Dosage: 19-DEC-2008
     Route: 065
  12. YASMIN [Suspect]
     Indication: ORAL CONTRACEPTION
     Route: 048
     Dates: start: 20050501, end: 20090501
  13. ACETAMINOPHEN [Concomitant]
     Dosage: 19-DEC-2008
     Route: 065
  14. ONDASETRON [Concomitant]
  15. ZITHROMAX [Concomitant]
     Dosage: 01/02/08
     Route: 065
  16. PROCHLORPERAZINE TAB [Concomitant]
     Dosage: 16-FEB-2008
     Route: 065
  17. PREDNISONE [Concomitant]
     Dosage: 11-APR-2010
     Route: 065
  18. CLOTRIMAZOLE [Concomitant]

REACTIONS (5)
  - CHOLELITHIASIS [None]
  - DIARRHOEA [None]
  - ABDOMINAL PAIN UPPER [None]
  - CHOLECYSTITIS CHRONIC [None]
  - NEPHROLITHIASIS [None]
